FAERS Safety Report 14086673 (Version 5)
Quarter: 2018Q3

REPORT INFORMATION
  Report Type: Report from Study
  Country: JP (occurrence: JP)
  Receive Date: 20171013
  Receipt Date: 20180921
  Transmission Date: 20181010
  Serious: Yes (Death, Other)
  Sender: FDA-Public Use
  Company Number: JP-INCYTE CORPORATION-2017IN004226

PATIENT

DRUGS (3)
  1. JAKAVI [Suspect]
     Active Substance: RUXOLITINIB
     Indication: POLYCYTHAEMIA VERA
     Dosage: 5 MG, BID
     Route: 048
     Dates: start: 20161014, end: 20161022
  2. DENOSINE [Concomitant]
     Active Substance: GANCICLOVIR
     Indication: ANTIVIRAL PROPHYLAXIS
     Dosage: 230 MG, BID
     Route: 065
     Dates: start: 20161102, end: 20161107
  3. JAKAVI [Suspect]
     Active Substance: RUXOLITINIB
     Dosage: 10 MG, BID
     Route: 048
     Dates: start: 20161023, end: 20161024

REACTIONS (14)
  - Pyrexia [Unknown]
  - Thalamus haemorrhage [Fatal]
  - Cytomegalovirus infection [Unknown]
  - Polycythaemia vera [Not Recovered/Not Resolved]
  - Subarachnoid haemorrhage [Recovering/Resolving]
  - Lymphocyte count decreased [Unknown]
  - Head injury [Recovering/Resolving]
  - Secondary immunodeficiency [Unknown]
  - Blood alkaline phosphatase increased [Unknown]
  - Bacterial infection [Unknown]
  - Haemoglobin decreased [Unknown]
  - Fall [Recovering/Resolving]
  - C-reactive protein increased [Recovered/Resolved]
  - Blood sodium decreased [Unknown]

NARRATIVE: CASE EVENT DATE: 201610
